FAERS Safety Report 19127546 (Version 1)
Quarter: 2021Q2

REPORT INFORMATION
  Report Type: Spontaneous
  Country: US (occurrence: US)
  Receive Date: 20210413
  Receipt Date: 20210413
  Transmission Date: 20210717
  Serious: No
  Sender: FDA-Public Use
  Company Number: US-MYOVANT SCIENCES GMBH-2021MYSCI0200030

PATIENT
  Sex: Male
  Weight: 71.2 kg

DRUGS (3)
  1. MIRALAX [Concomitant]
     Active Substance: POLYETHYLENE GLYCOL 3350
     Indication: PRODUCT USED FOR UNKNOWN INDICATION
     Dosage: UNK
     Route: 065
  2. ORGOVYX [Suspect]
     Active Substance: RELUGOLIX
     Indication: PROSTATE CANCER
     Dosage: 3, 120 MILLIGRAM TABLETS ON THE FIRST DAY
     Route: 048
     Dates: start: 20210123, end: 20210123
  3. ORGOVYX [Suspect]
     Active Substance: RELUGOLIX
     Dosage: 120 MILLIGRAM, QD
     Route: 048
     Dates: start: 20210124

REACTIONS (1)
  - Urinary incontinence [Not Recovered/Not Resolved]
